FAERS Safety Report 6035255-3 (Version None)
Quarter: 2009Q1

REPORT INFORMATION
  Report Type: 
  Country: None (occurrence: None)
  Receive Date: 20090109
  Receipt Date: 20081230
  Transmission Date: 20090719
  Serious: Yes (Hospitalization)
  Sender: FDA-Public Use
  Company Number: 20085768

PATIENT
  Sex: Female

DRUGS (1)
  1. LIORESAL [Suspect]
     Indication: MUSCLE SPASTICITY
     Dosage: 101 MCG, DAILY INTRATHECAL
     Route: 037

REACTIONS (8)
  - DRUG WITHDRAWAL SYNDROME [None]
  - ERYTHEMA [None]
  - HYPERTONIA [None]
  - INCISION SITE COMPLICATION [None]
  - INTRACRANIAL HYPOTENSION [None]
  - IRRITABILITY [None]
  - RESPIRATORY DISTRESS [None]
  - SCAR [None]
